FAERS Safety Report 9054783 (Version 1)
Quarter: 2013Q1

REPORT INFORMATION
  Report Type: Report from Study
  Country: AR (occurrence: AR)
  Receive Date: 20130208
  Receipt Date: 20130208
  Transmission Date: 20140127
  Serious: Yes (Other)
  Sender: FDA-Public Use
  Company Number: AR-ASTRAZENECA-2013SE06683

PATIENT
  Age: 25761 Day
  Sex: Female

DRUGS (7)
  1. AZD6140 [Suspect]
     Indication: CORONARY ARTERY DISEASE
     Route: 048
     Dates: start: 20111213, end: 20130123
  2. ASPIRINE [Suspect]
     Route: 048
     Dates: end: 20130124
  3. ASPIRINE [Suspect]
     Route: 048
     Dates: start: 20130130
  4. ENALAPRIL [Concomitant]
     Indication: CORONARY ARTERY DISEASE
     Route: 048
  5. ROSUVASTATINE [Concomitant]
     Indication: CORONARY ARTERY DISEASE
     Route: 048
  6. CARVEDILOL [Concomitant]
     Indication: CORONARY ARTERY DISEASE
     Route: 048
  7. RANITIDINE [Concomitant]
     Indication: PROPHYLAXIS
     Route: 048

REACTIONS (1)
  - Thrombocytopenia [Recovered/Resolved]
